FAERS Safety Report 19093281 (Version 1)
Quarter: 2021Q2

REPORT INFORMATION
  Report Type: Spontaneous
  Country: ES (occurrence: ES)
  Receive Date: 20210405
  Receipt Date: 20210405
  Transmission Date: 20210717
  Serious: Yes (Life-Threatening)
  Sender: FDA-Public Use
  Company Number: ES-PFIZER INC-2021316427

PATIENT
  Age: 35 Year
  Sex: Female

DRUGS (4)
  1. ZITROMAX [Suspect]
     Active Substance: AZITHROMYCIN
     Dosage: 1 G, 1X/DAY (1 G EVERY 24 HOURS)
     Route: 042
     Dates: start: 20210306
  2. TRANDATE [Concomitant]
     Active Substance: LABETALOL HYDROCHLORIDE
     Dosage: 100 MG, 2X/DAY (100 MG EVERY 12 HOURS)
     Route: 048
     Dates: start: 20210304, end: 20210307
  3. NOLOTIL [METAMIZOLE MAGNESIUM] [Concomitant]
     Active Substance: METAMIZOLE MAGNESIUM
     Dosage: 2 G, 3X/DAY (2 G EVERY 8 HOURS)
     Route: 042
     Dates: start: 20210302, end: 20210307
  4. KABI PARACETAMOL [Concomitant]
     Dosage: 1 G, 3X/DAY (1 G EVERY 8 HOURS)
     Route: 042
     Dates: start: 20210302

REACTIONS (5)
  - Off label use [Unknown]
  - Product use issue [Unknown]
  - Agitation [Recovered/Resolved]
  - Hypertension [Recovered/Resolved]
  - Dyspnoea [Recovered/Resolved]

NARRATIVE: CASE EVENT DATE: 20210306
